FAERS Safety Report 21857923 (Version 1)
Quarter: 2023Q1

REPORT INFORMATION
  Report Type: Spontaneous
  Country: US (occurrence: US)
  Receive Date: 20230113
  Receipt Date: 20230113
  Transmission Date: 20230418
  Serious: No
  Sender: FDA-Public Use
  Company Number: US-SA-SAC20230111001548

PATIENT
  Age: 54 Year
  Sex: Female
  Weight: 79.37 kg

DRUGS (4)
  1. AUBAGIO [Suspect]
     Active Substance: TERIFLUNOMIDE
     Indication: Multiple sclerosis
     Dosage: 7 MG, QD
     Route: 048
     Dates: start: 20200428
  2. BACLOFEN [Concomitant]
     Active Substance: BACLOFEN
  3. TEMAZEPAM [Concomitant]
     Active Substance: TEMAZEPAM
  4. NEURONTIN [GABAPENTIN] [Concomitant]

REACTIONS (2)
  - Inflammation [Unknown]
  - Muscle spasms [Unknown]
